FAERS Safety Report 8975238 (Version 1)
Quarter: 2012Q4

REPORT INFORMATION
  Report Type: 
  Country: US (occurrence: US)
  Receive Date: 20121219
  Receipt Date: 20121219
  Transmission Date: 20130627
  Serious: No
  Sender: FDA-Public Use
  Company Number: US-TARO-2012P1064739

PATIENT
  Age: 71 Year
  Sex: Female
  Weight: 64.86 kg

DRUGS (2)
  1. FLUOROURACIL [Suspect]
     Route: 061
     Dates: start: 20121111, end: 20121112
  2. ASPIRIN [Concomitant]

REACTIONS (2)
  - Application site pain [Recovered/Resolved]
  - Inappropriate schedule of drug administration [Not Recovered/Not Resolved]
